FAERS Safety Report 8471376-3 (Version None)
Quarter: 2012Q2

REPORT INFORMATION
  Report Type: 
  Country: None (occurrence: None)
  Receive Date: 20120627
  Receipt Date: 20120619
  Transmission Date: 20120825
  Serious: Yes (Other)
  Sender: FDA-Public Use
  Company Number: BR-SANOFI-AVENTIS-2012SA044078

PATIENT
  Age: 26 Year
  Sex: Male
  Weight: 67 kg

DRUGS (6)
  1. LOSARTAN POTASSIUM [Concomitant]
     Indication: PROPHYLAXIS
     Dosage: STRENGTH: 50 MG
     Route: 048
  2. LOSARTAN POTASSIUM [Concomitant]
     Dosage: STRENGTH: 50 MG
     Route: 048
  3. ALISKIREN [Concomitant]
     Dosage: STRENGTH: 300 MG
     Route: 048
     Dates: start: 20080101
  4. OPTIPEN [Suspect]
     Indication: DEVICE THERAPY
     Dates: start: 20020101
  5. LANTUS [Suspect]
     Route: 058
     Dates: start: 20020101
  6. SIMVASTATIN [Concomitant]
     Dosage: STRENGTH: 25 MG
     Route: 048

REACTIONS (3)
  - DIABETIC RETINOPATHY [None]
  - DIABETIC NEPHROPATHY [None]
  - BLINDNESS [None]
